FAERS Safety Report 10576249 (Version 1)
Quarter: 2014Q4

REPORT INFORMATION
  Report Type: Spontaneous
  Country: US (occurrence: None)
  Receive Date: 20141107
  Receipt Date: 20141107
  Transmission Date: 20150529
  Serious: Yes (Hospitalization)
  Sender: FDA-Public Use
  Company Number: IMP_08040_2014

PATIENT
  Sex: Female

DRUGS (1)
  1. BUPROPION [Suspect]
     Active Substance: BUPROPION
     Indication: PRODUCT USED FOR UNKNOWN INDICATION

REACTIONS (8)
  - Electrocardiogram ST segment elevation [None]
  - Generalised tonic-clonic seizure [None]
  - Palpitations [None]
  - Electrocardiogram ST segment depression [None]
  - Intentional overdose [None]
  - Dizziness [None]
  - Sinus tachycardia [None]
  - Vomiting [None]
